FAERS Safety Report 19856052 (Version 1)
Quarter: 2021Q3

REPORT INFORMATION
  Report Type: Spontaneous
  Country: US (occurrence: US)
  Receive Date: 20210920
  Receipt Date: 20210920
  Transmission Date: 20211014
  Serious: Yes (Other)
  Sender: FDA-Public Use
  Company Number: US-ACCORD-238594

PATIENT
  Age: 15 Year
  Sex: Male

DRUGS (1)
  1. MYCOPHENOLIC ACID. [Suspect]
     Active Substance: MYCOPHENOLIC ACID
     Indication: SYSTEMIC LUPUS ERYTHEMATOSUS
     Dates: end: 2020

REACTIONS (7)
  - Toxicity to various agents [Unknown]
  - Acute kidney injury [Unknown]
  - Thrombocytopenia [Unknown]
  - Drug level increased [Not Recovered/Not Resolved]
  - Anaemia [Recovered/Resolved]
  - Reticulocytopenia [Unknown]
  - Off label use [Unknown]

NARRATIVE: CASE EVENT DATE: 2020
